FAERS Safety Report 5166896-3 (Version None)
Quarter: 2006Q4

REPORT INFORMATION
  Report Type: 
  Country: None (occurrence: None)
  Receive Date: 20061129
  Receipt Date: 20061116
  Transmission Date: 20070319
  Serious: Yes (Hospitalization)
  Sender: FDA-Public Use
  Company Number: 2006143114

PATIENT
  Age: 60 Year
  Sex: Male
  Weight: 68.9 kg

DRUGS (8)
  1. SUTENT [Suspect]
     Indication: RENAL CELL CARCINOMA STAGE UNSPECIFIED
     Dosage: 50 MG (50 MG, 1 IN 1 D), ORAL
     Route: 048
     Dates: start: 20061108, end: 20061113
  2. PALIN (PIPEMIDIC ACID) [Concomitant]
  3. NO-SPA (DROTAVERINE HYDROCHLORIDE) [Concomitant]
  4. AMIZEPIN (CARBAMAZEPINE) [Concomitant]
  5. KETONAL (KETOPROFEN) [Concomitant]
  6. BIOXETIN (FLUOXETINE) [Concomitant]
  7. FLUCONAZOLE [Concomitant]
  8. POLPRAZOL (OMEPRAZOLE) [Concomitant]

REACTIONS (3)
  - GENITAL ULCERATION [None]
  - INFECTION [None]
  - SCROTAL OEDEMA [None]
